FAERS Safety Report 9282952 (Version 1)
Quarter: 2013Q2

REPORT INFORMATION
  Report Type: Spontaneous
  Country: RU (occurrence: RU)
  Receive Date: 20130510
  Receipt Date: 20130510
  Transmission Date: 20140414
  Serious: Yes (Hospitalization)
  Sender: FDA-Public Use
  Company Number: RU-BAYER-2013-057512

PATIENT
  Sex: Female

DRUGS (2)
  1. YAZ [Suspect]
     Indication: ACNE
     Dosage: UNK
  2. VISANNA [Suspect]

REACTIONS (9)
  - Headache [None]
  - Mood altered [None]
  - Pain [None]
  - Lymphadenopathy [Recovered/Resolved]
  - Hypersomnia [None]
  - Endometriosis [None]
  - Pain [None]
  - Menstrual disorder [None]
  - Vaginal discharge [None]
